FAERS Safety Report 23064467 (Version 1)
Quarter: 2023Q4

REPORT INFORMATION
  Report Type: Spontaneous
  Country: US (occurrence: US)
  Receive Date: 20231013
  Receipt Date: 20231013
  Transmission Date: 20240110
  Serious: Yes (Death, Hospitalization, Other)
  Sender: FDA-Public Use
  Company Number: US-AMNEAL PHARMACEUTICALS-2023-AMRX-03571

PATIENT
  Age: 43 Year
  Sex: Male

DRUGS (1)
  1. BUPROPION HYDROCHLORIDE SR [Suspect]
     Active Substance: BUPROPION HYDROCHLORIDE
     Indication: Product used for unknown indication
     Dosage: 12 GRAMS
     Route: 065

REACTIONS (8)
  - Multiple organ dysfunction syndrome [Fatal]
  - Electrocardiogram ST-T segment elevation [Recovered/Resolved]
  - Toxicity to various agents [Unknown]
  - Acidosis hyperchloraemic [Recovered/Resolved]
  - Hypoxia [Unknown]
  - Stenosis [Unknown]
  - Intentional overdose [Unknown]
  - Hypotension [Unknown]
